FAERS Safety Report 14524566 (Version 1)
Quarter: 2018Q1

REPORT INFORMATION
  Report Type: Spontaneous
  Country: US (occurrence: US)
  Receive Date: 20180213
  Receipt Date: 20180213
  Transmission Date: 20180509
  Serious: No
  Sender: FDA-Public Use
  Company Number: US-AUROBINDO-AUR-APU-2017-42903

PATIENT

DRUGS (1)
  1. OXYMORPHONE TABLET 5 MG [Suspect]
     Active Substance: OXYMORPHONE
     Indication: PAIN
     Dosage: UNK
     Route: 065
     Dates: start: 201706

REACTIONS (6)
  - Headache [Unknown]
  - Muscle spasms [Unknown]
  - Product size issue [Unknown]
  - Product friable [Unknown]
  - Drug ineffective [Unknown]
  - Cold sweat [Unknown]

NARRATIVE: CASE EVENT DATE: 201706
